FAERS Safety Report 8887632 (Version 1)
Quarter: 2012Q4

REPORT INFORMATION
  Report Type: Spontaneous
  Country: US (occurrence: None)
  Receive Date: 20121101
  Receipt Date: 20121101
  Transmission Date: 20130627
  Serious: Yes (Hospitalization)
  Sender: FDA-Public Use
  Company Number: None

PATIENT
  Age: 55 Year
  Sex: Male

DRUGS (1)
  1. HUMIRA [Suspect]
     Indication: JUVENILE RHEUMATOID ARTHRITIS
     Route: 058
     Dates: end: 201205

REACTIONS (2)
  - Squamous cell carcinoma [None]
  - Brain neoplasm [None]
